FAERS Safety Report 7283121-8 (Version None)
Quarter: 2011Q1

REPORT INFORMATION
  Report Type: 
  Country: None (occurrence: None)
  Receive Date: 20110209
  Receipt Date: 20100830
  Transmission Date: 20110831
  Serious: No
  Sender: FDA-Public Use
  Company Number: A0879127A

PATIENT
  Age: 60 Year
  Sex: Female

DRUGS (3)
  1. THYROID MEDICATION [Concomitant]
  2. DEPLIN [Concomitant]
  3. PAXIL CR [Suspect]
     Indication: DEPRESSION
     Dosage: 50MG PER DAY
     Route: 048

REACTIONS (1)
  - WEIGHT INCREASED [None]
